APPROVED DRUG PRODUCT: CLARITHROMYCIN
Active Ingredient: CLARITHROMYCIN
Strength: 250MG/5ML
Dosage Form/Route: FOR SUSPENSION;ORAL
Application: A065283 | Product #003
Applicant: SANDOZ INC
Approved: Sep 4, 2007 | RLD: No | RS: Yes | Type: RX